FAERS Safety Report 26000321 (Version 1)
Quarter: 2025Q4

REPORT INFORMATION
  Report Type: Spontaneous
  Country: EU (occurrence: EU)
  Receive Date: 20251105
  Receipt Date: 20251105
  Transmission Date: 20260119
  Serious: Yes (Other)
  Sender: NOVARTIS
  Company Number: EU-002147023-NVSC2025FR167224

PATIENT
  Age: 47 Year
  Sex: Male

DRUGS (3)
  1. TAFINLAR [Suspect]
     Active Substance: DABRAFENIB MESYLATE
     Indication: Metastatic malignant melanoma
     Dosage: 75 MG (2  CAPSULES  MORNING  AND  EVENING)
     Route: 065
     Dates: start: 202502
  2. MEKINIST [Suspect]
     Active Substance: TRAMETINIB DIMETHYL SULFOXIDE
     Indication: Metastatic malignant melanoma
     Dosage: 2 MG
     Route: 065
     Dates: start: 202503, end: 202510
  3. MEKINIST [Suspect]
     Active Substance: TRAMETINIB DIMETHYL SULFOXIDE
     Dosage: 0.5 MG (3 TABLETS EVERY  EVENING  FOR 3  WEEKS)
     Route: 065

REACTIONS (11)
  - Diabetes mellitus [Unknown]
  - Erosive oesophagitis [Unknown]
  - Vomiting [Unknown]
  - Constipation [Unknown]
  - Skin haemorrhage [Unknown]
  - Hypertension [Unknown]
  - Diarrhoea [Unknown]
  - Myalgia [Unknown]
  - Arthralgia [Unknown]
  - Sarcoidosis [Unknown]
  - Salivary gland disorder [Unknown]

NARRATIVE: CASE EVENT DATE: 20250701
